FAERS Safety Report 8321381 (Version 2)
Quarter: 2013Q4

REPORT INFORMATION
  Report Type: Spontaneous
  Country: US (occurrence: US)
  Receive Date: 20120104
  Receipt Date: 20131119
  Transmission Date: 20140711
  Serious: Yes (Hospitalization)
  Sender: FDA-Public Use
  Company Number: US-GLAXOSMITHKLINE-A0934693A

PATIENT
  Age: 51 Year
  Sex: Male
  Weight: 149.1 kg

DRUGS (1)
  1. AVANDIA [Suspect]
     Indication: DIABETES MELLITUS
     Dosage: 8MG PER DAY
     Route: 048
     Dates: start: 2003, end: 201004

REACTIONS (3)
  - Cerebrovascular accident [Unknown]
  - Heart injury [Unknown]
  - Transient ischaemic attack [Unknown]
